FAERS Safety Report 9066648 (Version 1)
Quarter: 2013Q1

REPORT INFORMATION
  Report Type: Report from Study
  Country: US (occurrence: US)
  Receive Date: 20130131
  Receipt Date: 20130131
  Transmission Date: 20140127
  Serious: No
  Sender: FDA-Public Use
  Company Number: US-ABBOTT-12P-163-1015898-00

PATIENT
  Age: 63 Year
  Sex: Female

DRUGS (15)
  1. HUMIRA [Suspect]
     Indication: PSORIASIS
     Dates: start: 20120409
  2. OMEPRAZOLE [Concomitant]
     Indication: GASTROOESOPHAGEAL REFLUX DISEASE
     Dosage: 20 MG DAILY
  3. LEVOTHYROXINE [Concomitant]
     Indication: HYPOTHYROIDISM
     Dosage: 88 MCG DAILY
  4. PAROXETINE HCL [Concomitant]
     Indication: ANXIETY
  5. IMIPRAMINE [Concomitant]
     Indication: INSOMNIA
     Dosage: 50 MG, 2 TABS DAILY AT BEDTIME
  6. IMIPRAMINE [Concomitant]
     Indication: ANXIETY
  7. FUROSEMIDE [Concomitant]
     Indication: DIURETIC THERAPY
     Dosage: 40 MG DAILY
  8. FUROSEMIDE [Concomitant]
     Indication: DIURETIC THERAPY
  9. LISINOPRIL [Concomitant]
     Indication: MYOCARDIAL INFARCTION
     Dosage: 5 MG DAILY
  10. LISINOPRIL [Concomitant]
     Indication: HYPERTENSION
  11. PLAVIX [Concomitant]
     Indication: MYOCARDIAL INFARCTION
     Dosage: 75 MG DAILY
  12. SIMVASTATIN [Concomitant]
     Indication: BLOOD CHOLESTEROL INCREASED
     Dosage: 40 MG DAILY AT NIGHT
  13. METOPROLOL [Concomitant]
     Indication: PRODUCT USED FOR UNKNOWN INDICATION
  14. NITROSTAT [Concomitant]
     Indication: CHEST PAIN
  15. BABY ASPIRIN [Concomitant]
     Indication: MYOCARDIAL INFARCTION
     Dosage: 81 MG DAILY

REACTIONS (2)
  - Abdominal discomfort [Not Recovered/Not Resolved]
  - Diarrhoea [Not Recovered/Not Resolved]
